FAERS Safety Report 19086362 (Version 1)
Quarter: 2021Q2

REPORT INFORMATION
  Report Type: Report from Study
  Country: None (occurrence: CA)
  Receive Date: 20210402
  Receipt Date: 20210402
  Transmission Date: 20210717
  Serious: Yes (Other)
  Sender: FDA-Public Use
  Company Number: CA-ABBVIE-21K-028-3836225-00

PATIENT
  Age: 47 Year
  Sex: Male

DRUGS (1)
  1. HUMIRA [Suspect]
     Active Substance: ADALIMUMAB
     Indication: ANKYLOSING SPONDYLITIS
     Route: 058
     Dates: start: 20190718

REACTIONS (12)
  - Arthralgia [Unknown]
  - Malaise [Unknown]
  - Vomiting [Recovered/Resolved]
  - Constipation [Recovered/Resolved]
  - Scab [Unknown]
  - Unevaluable event [Recovered/Resolved]
  - Haemorrhoids [Unknown]
  - Headache [Recovered/Resolved]
  - Tooth abscess [Recovered/Resolved]
  - Diarrhoea [Recovered/Resolved]
  - Impaired quality of life [Unknown]
  - Posture abnormal [Not Recovered/Not Resolved]

NARRATIVE: CASE EVENT DATE: 2020
